FAERS Safety Report 7359616 (Version 8)
Quarter: 2013Q4

REPORT INFORMATION
  Report Type: Spontaneous
  Country: US (occurrence: US)
  Receive Date: 20100420
  Receipt Date: 20131230
  Transmission Date: 20140711
  Serious: Yes (Death, Hospitalization)
  Sender: FDA-Public Use
  Company Number: US-BAYER-201019555NA

PATIENT
  Age: 33 Year
  Sex: Female
  Weight: 120 kg

DRUGS (30)
  1. YASMIN [Suspect]
     Indication: PREMENSTRUAL SYNDROME
     Dosage: UNK
     Dates: start: 20080410, end: 200806
  2. SEROQUEL [Concomitant]
     Dosage: 1000 MG (DAILY DOSE), QD, ORAL
     Route: 048
  3. TRAZODONE [Concomitant]
     Dosage: QHS
     Route: 048
  4. PROTONIX [Concomitant]
     Dosage: 40 MG (DAILY DOSE), QD, ORAL
     Route: 048
  5. DIOVAN [Concomitant]
     Dosage: 4 MG (DAILY DOSE), QD, ORAL
     Route: 048
  6. JANUVIA [Concomitant]
     Dosage: 2 MG (DAILY DOSE), QD, ORAL
     Route: 048
  7. PROZAC [Concomitant]
     Dosage: 20 MG (DAILY DOSE), QD, ORAL
     Route: 048
  8. CIPRO [Concomitant]
     Dosage: 250 MG (DAILY DOSE), BID,
  9. DARVOCET [Concomitant]
     Indication: PAIN
     Dosage: 1-2 TABLETS Q4H
  10. ZITHROMAX Z-PACK [Concomitant]
  11. TESSALON PERLES [Concomitant]
  12. NORMAL SALINE [Concomitant]
  13. PHENERGAN [Concomitant]
  14. DILAUDID [Concomitant]
  15. ZOFRAN [Concomitant]
  16. ALBUTEROL INHALER [Concomitant]
  17. TUSSIONEX [Concomitant]
  18. IBUPROFEN [Concomitant]
  19. IBUPROFEN [Concomitant]
  20. HALDOL [Concomitant]
  21. ROCEPHIN [Concomitant]
     Dates: end: 20080624
  22. TUSSIONEX [HYDROCODONE,PHENYLTOLOXAMINE] [Concomitant]
  23. PROTONIX [Concomitant]
     Dosage: UNK
     Route: 042
  24. NAPROXEN [Concomitant]
     Indication: PAIN IN EXTREMITY
     Dosage: UNK UNK, BID
     Dates: start: 20080616
  25. NEURONTIN [Concomitant]
     Dosage: 600 MG, TID
     Route: 048
     Dates: start: 20080616
  26. CEFDINIR [Concomitant]
     Dosage: 300 MG, BID
     Route: 048
     Dates: start: 20080508
  27. OMNICEF [Concomitant]
  28. SUDAFED [Concomitant]
  29. MUCINEX [Concomitant]
  30. ASTELIN [Concomitant]

REACTIONS (5)
  - Pulmonary embolism [Fatal]
  - Deep vein thrombosis [Unknown]
  - Pain in extremity [Unknown]
  - Respiratory arrest [Fatal]
  - Off label use [None]
